FAERS Safety Report 9549477 (Version 1)
Quarter: 2013Q3

REPORT INFORMATION
  Report Type: Report from Study
  Country: BR (occurrence: BR)
  Receive Date: 20130924
  Receipt Date: 20130924
  Transmission Date: 20140515
  Serious: Yes (Other)
  Sender: FDA-Public Use
  Company Number: PHHY2013BR104635

PATIENT
  Age: 62 Year
  Sex: Male

DRUGS (8)
  1. METFORMIN [Suspect]
  2. CANDESARTAN - 1 A PHARMA [Suspect]
  3. GLIMEPIRID 1A PHARMA [Suspect]
  4. ROSUVASTATIN [Suspect]
  5. BUFFERIN [Suspect]
  6. BISOPROLOL [Concomitant]
  7. FUROSEMIDE [Concomitant]
  8. ISOSORBIDE MONONITRATE [Concomitant]

REACTIONS (7)
  - Body mass index increased [Unknown]
  - Breath sounds abnormal [Unknown]
  - Pulmonary hypertension [Unknown]
  - Pulmonary arterial pressure increased [Unknown]
  - Tricuspid valve incompetence [Unknown]
  - Emphysema [Unknown]
  - Hypotension [Unknown]
